FAERS Safety Report 7074474 (Version 2)
Quarter: 2014Q1

REPORT INFORMATION
  Report Type: Spontaneous
  Country: US (occurrence: None)
  Receive Date: 20090724
  Receipt Date: 20140206
  Transmission Date: 20141002
  Serious: Yes (Hospitalization, Other)
  Sender: FDA-Public Use
  Company Number: 2009S1005529

PATIENT
  Age: 49 Year
  Sex: Female

DRUGS (4)
  1. FLEET PHOSPHO-SODA ORAL SALINE LAXATIVE, GINGER-LEMON FLAVOR (ORAL SOLUTION) [Suspect]
     Indication: PRODUCT USED FOR UNKNOWN INDICATION
     Route: 048
  2. LAMIVUDINE (LAMIVUDINE) [Concomitant]
  3. KALETRA (RITONAVIR, LOPINAVIR) [Concomitant]
  4. VIREAD [Concomitant]

REACTIONS (1)
  - Renal failure [None]
